FAERS Safety Report 19916951 (Version 1)
Quarter: 2021Q4

REPORT INFORMATION
  Report Type: Spontaneous
  Country: US (occurrence: US)
  Receive Date: 20211004
  Receipt Date: 20211004
  Transmission Date: 20220303
  Serious: No
  Sender: FDA-Public Use
  Company Number: US-OTSUKA-2020_023190

PATIENT
  Age: 38 Year
  Sex: Female

DRUGS (4)
  1. ABILIFY MAINTENA [Suspect]
     Active Substance: ARIPIPRAZOLE
     Indication: Product used for unknown indication
     Dosage: 400 MG, UNK
     Route: 065
  2. ABILIFY MAINTENA [Suspect]
     Active Substance: ARIPIPRAZOLE
     Dosage: 300 MG, UNK
     Route: 065
  3. ABILIFY MAINTENA [Suspect]
     Active Substance: ARIPIPRAZOLE
     Dosage: 200 MG, UNK
     Route: 065
  4. ABILIFY MAINTENA [Suspect]
     Active Substance: ARIPIPRAZOLE
     Dosage: 160 MG, UNK
     Route: 065

REACTIONS (3)
  - Movement disorder [Unknown]
  - Tardive dyskinesia [Unknown]
  - Underdose [Unknown]
